FAERS Safety Report 22626109 (Version 3)
Quarter: 2023Q4

REPORT INFORMATION
  Report Type: Spontaneous
  Country: US (occurrence: US)
  Receive Date: 20230621
  Receipt Date: 20231205
  Transmission Date: 20240110
  Serious: No
  Sender: FDA-Public Use
  Company Number: US-BRISTOL-MYERS SQUIBB COMPANY-2023-087546

PATIENT
  Age: 61 Year
  Sex: Female
  Weight: 92.08 kg

DRUGS (2)
  1. REVLIMID [Suspect]
     Active Substance: LENALIDOMIDE
     Indication: Plasma cell myeloma
     Route: 048
     Dates: start: 20221001
  2. REVLIMID [Suspect]
     Active Substance: LENALIDOMIDE
     Dosage: 3 WEEKS ON ,1 WEEK OFF
     Route: 048

REACTIONS (2)
  - Product dose omission issue [Unknown]
  - Skin laceration [Unknown]

NARRATIVE: CASE EVENT DATE: 20230616
